FAERS Safety Report 9542020 (Version 1)
Quarter: 2013Q3

REPORT INFORMATION
  Report Type: Report from Study
  Country: CA (occurrence: CA)
  Receive Date: 20130923
  Receipt Date: 20130923
  Transmission Date: 20140515
  Serious: Yes (Other)
  Sender: FDA-Public Use
  Company Number: CA-JNJFOC-20130909706

PATIENT
  Sex: Male
  Weight: 78.6 kg

DRUGS (5)
  1. REMICADE [Suspect]
     Indication: CROHN^S DISEASE
     Route: 042
     Dates: start: 20081118
  2. IMURAN [Concomitant]
     Route: 065
  3. MORPHINE [Concomitant]
     Route: 065
  4. IRON [Concomitant]
     Route: 065
  5. B12 [Concomitant]
     Route: 065

REACTIONS (1)
  - Nephrolithiasis [Recovered/Resolved]
